FAERS Safety Report 13756073 (Version 1)
Quarter: 2017Q3

REPORT INFORMATION
  Report Type: Spontaneous
  Country: SE (occurrence: SE)
  Receive Date: 20170714
  Receipt Date: 20170714
  Transmission Date: 20171127
  Serious: Yes (Other)
  Sender: FDA-Public Use
  Company Number: SE-ASTRAZENECA-2017SE69385

PATIENT
  Age: 46 Year
  Sex: Female

DRUGS (9)
  1. ALVESCO [Suspect]
     Active Substance: CICLESONIDE
     Indication: ASTHMA
     Route: 055
     Dates: start: 201706, end: 20170704
  2. SEREVENT DISKUS [Concomitant]
     Active Substance: SALMETEROL XINAFOATE
  3. ALVESCO [Suspect]
     Active Substance: CICLESONIDE
     Indication: ASTHMA
     Route: 055
     Dates: start: 20170401, end: 201705
  4. ALVESCO [Suspect]
     Active Substance: CICLESONIDE
     Indication: VASOMOTOR RHINITIS
     Route: 055
     Dates: start: 201705, end: 201706
  5. ALVESCO [Suspect]
     Active Substance: CICLESONIDE
     Indication: VASOMOTOR RHINITIS
     Route: 055
     Dates: start: 201706, end: 20170704
  6. FEXOFENADINE [Concomitant]
     Active Substance: FEXOFENADINE\FEXOFENADINE HYDROCHLORIDE
  7. ALVESCO [Suspect]
     Active Substance: CICLESONIDE
     Indication: VASOMOTOR RHINITIS
     Route: 055
     Dates: start: 20170401, end: 201705
  8. ALVESCO [Suspect]
     Active Substance: CICLESONIDE
     Indication: ASTHMA
     Route: 055
     Dates: start: 201705, end: 201706
  9. AIROMIR [Concomitant]
     Active Substance: ALBUTEROL SULFATE

REACTIONS (4)
  - Arthritis bacterial [Unknown]
  - Arthritis reactive [Unknown]
  - Systemic lupus erythematosus [Unknown]
  - Antinuclear antibody positive [Unknown]
